FAERS Safety Report 15598776 (Version 4)
Quarter: 2021Q3

REPORT INFORMATION
  Report Type: Spontaneous
  Country: US (occurrence: US)
  Receive Date: 20181108
  Receipt Date: 20210730
  Transmission Date: 20211014
  Serious: Yes (Hospitalization, Other)
  Sender: FDA-Public Use
  Company Number: US-VIFOR (INTERNATIONAL) INC.-VIT-2018-10805

PATIENT
  Age: 58 Year
  Sex: Female

DRUGS (19)
  1. LANTUS [Concomitant]
     Active Substance: INSULIN GLARGINE
  2. VELTASSA [Suspect]
     Active Substance: PATIROMER
     Indication: HYPERKALAEMIA
     Route: 048
     Dates: start: 20160708
  3. RENA?VITE [Concomitant]
     Active Substance: ASCORBIC ACID\BIOTIN\CALCIUM PANTOTHENATE\CYANOCOBALAMIN\FOLIC ACID\NIACINAMIDE\PYRIDOXINE HYDROCHLORIDE\RIBOFLAVIN\THIAMINE MONONITRATE
  4. CARVEDILOL. [Concomitant]
     Active Substance: CARVEDILOL
  5. CRESTOR [Concomitant]
     Active Substance: ROSUVASTATIN CALCIUM
  6. ACETAMINOPHEN. [Concomitant]
     Active Substance: ACETAMINOPHEN
  7. LEVEMIR [Concomitant]
     Active Substance: INSULIN DETEMIR
  8. CALCIUM ACETATE. [Concomitant]
     Active Substance: CALCIUM ACETATE
  9. TRADJENTA [Concomitant]
     Active Substance: LINAGLIPTIN
  10. VELTASSA [Suspect]
     Active Substance: PATIROMER
     Route: 048
  11. DOCUSATE SODIUM. [Concomitant]
     Active Substance: DOCUSATE SODIUM
  12. SENSIPAR [Concomitant]
     Active Substance: CINACALCET HYDROCHLORIDE
  13. RENVELA [Concomitant]
     Active Substance: SEVELAMER CARBONATE
  14. VITAMIN D [Concomitant]
     Active Substance: VITAMIN D NOS
  15. NIFEDIPINE. [Concomitant]
     Active Substance: NIFEDIPINE
  16. COENZYME Q10 [Concomitant]
     Active Substance: DIETARY SUPPLEMENT\UBIDECARENONE
  17. SERTRALINE HCL [Concomitant]
     Active Substance: SERTRALINE HYDROCHLORIDE
  18. FUROSEMIDE. [Concomitant]
     Active Substance: FUROSEMIDE
  19. HUMALOG MIX50/50 [Concomitant]
     Active Substance: INSULIN LISPRO

REACTIONS (5)
  - Product dose omission issue [Recovered/Resolved]
  - Dizziness [Unknown]
  - Blood glucose decreased [Unknown]
  - Gait disturbance [Unknown]
  - Hepatitis [Unknown]

NARRATIVE: CASE EVENT DATE: 20181025
